FAERS Safety Report 7222445-7 (Version None)
Quarter: 2010Q4

REPORT INFORMATION
  Report Type: 
  Country: None (occurrence: None)
  Receive Date: 20101227
  Receipt Date: 20101217
  Transmission Date: 20110411
  Serious: Yes (Other)
  Sender: FDA-Public Use
  Company Number: CA-145100

PATIENT
  Sex: Female

DRUGS (3)
  1. WINRHO [Suspect]
     Dosage: (300 ?G), (300 ?G)
     Dates: start: 19980909, end: 19980909
  2. WINRHO [Suspect]
     Dosage: (300 ?G), (300 ?G)
     Dates: start: 19991015, end: 19991015
  3. WINRHO [Suspect]

REACTIONS (2)
  - HEPATITIS C [None]
  - PRODUCT CONTAMINATION MICROBIAL [None]
